FAERS Safety Report 14272258 (Version 4)
Quarter: 2019Q1

REPORT INFORMATION
  Report Type: Spontaneous
  Country: US (occurrence: US)
  Receive Date: 20171211
  Receipt Date: 20190313
  Transmission Date: 20190417
  Serious: Yes (Other)
  Sender: FDA-Public Use
  Company Number: US-OTSUKA-2017_010061

PATIENT
  Age: 64 Year
  Sex: Male
  Weight: 85 kg

DRUGS (6)
  1. LISINOPRIL. [Concomitant]
     Active Substance: LISINOPRIL
     Indication: PRODUCT USED FOR UNKNOWN INDICATION
     Dosage: 20 MG, UNK
     Route: 065
  2. ARIPIPRAZOLE. [Concomitant]
     Active Substance: ARIPIPRAZOLE
     Indication: PRODUCT USED FOR UNKNOWN INDICATION
     Dosage: UNK
     Route: 065
     Dates: start: 201002, end: 201611
  3. ABILIFY [Suspect]
     Active Substance: ARIPIPRAZOLE
     Dosage: 30 MG, QD
     Route: 065
     Dates: start: 201002, end: 201611
  4. SIMVASTATIN. [Concomitant]
     Active Substance: SIMVASTATIN
     Indication: PRODUCT USED FOR UNKNOWN INDICATION
     Dosage: 80 MG, UNK
     Route: 065
  5. BUPROPION. [Concomitant]
     Active Substance: BUPROPION
     Indication: PRODUCT USED FOR UNKNOWN INDICATION
     Dosage: 150 MG, UNK
     Route: 065
  6. ABILIFY [Suspect]
     Active Substance: ARIPIPRAZOLE
     Indication: SCHIZOPHRENIA
     Dosage: 20 MG, QD
     Route: 065
     Dates: start: 201002, end: 201611

REACTIONS (23)
  - Cerebrovascular accident [Unknown]
  - Feeling abnormal [Unknown]
  - Back pain [Unknown]
  - Economic problem [Unknown]
  - Major depression [Unknown]
  - Neck pain [Unknown]
  - Obsessive-compulsive disorder [Recovered/Resolved]
  - Brain injury [Unknown]
  - Persistent depressive disorder [Unknown]
  - Astigmatism [Unknown]
  - Emotional distress [Unknown]
  - Impulsive behaviour [Recovered/Resolved]
  - Bankruptcy [Unknown]
  - Schizoaffective disorder [Unknown]
  - Presbyopia [Unknown]
  - Hypermetropia [Unknown]
  - Compulsive sexual behaviour [Recovered/Resolved]
  - Injury [Unknown]
  - Mental disorder [Unknown]
  - Gambling disorder [Recovered/Resolved]
  - Strabismus [Unknown]
  - Aortic aneurysm [Unknown]
  - Condition aggravated [Unknown]

NARRATIVE: CASE EVENT DATE: 2011
